FAERS Safety Report 7754005-3 (Version None)
Quarter: 2011Q3

REPORT INFORMATION
  Report Type: 
  Country: None (occurrence: None)
  Receive Date: 20110915
  Receipt Date: 20110906
  Transmission Date: 20111222
  Serious: Yes (Hospitalization)
  Sender: FDA-Public Use
  Company Number: DE-ACTELION-A-CH2011-48079

PATIENT
  Age: 51 Year
  Sex: Female
  Weight: 85 kg

DRUGS (9)
  1. PREDNISOLONE [Concomitant]
  2. CYCLOPHOSPHAMIDE [Concomitant]
  3. TRACLEER [Suspect]
     Dosage: 62.5 MG, BID
     Route: 048
     Dates: start: 20091217, end: 20100120
  4. OMEPRAZOLE [Concomitant]
  5. IBUPROFEN [Suspect]
     Indication: MUSCULOSKELETAL PAIN
     Dosage: 400 MG, TID
     Dates: start: 20110101, end: 20110301
  6. VERPAMIL HCL [Concomitant]
  7. DOMPERIDON [Concomitant]
  8. CYMBALTA [Concomitant]
  9. TRACLEER [Suspect]
     Indication: SKIN ULCER
     Dosage: 125 MG, BID
     Route: 048
     Dates: start: 20100121, end: 20110325

REACTIONS (13)
  - CHROMATURIA [None]
  - VOMITING [None]
  - SHOULDER OPERATION [None]
  - FAECES DISCOLOURED [None]
  - ALANINE AMINOTRANSFERASE INCREASED [None]
  - LIVER FUNCTION TEST ABNORMAL [None]
  - LIVER INJURY [None]
  - PAIN [None]
  - NAUSEA [None]
  - ASPARTATE AMINOTRANSFERASE INCREASED [None]
  - BLOOD BILIRUBIN INCREASED [None]
  - ACUTE HEPATIC FAILURE [None]
  - JAUNDICE [None]
